FAERS Safety Report 8284131-4 (Version None)
Quarter: 2012Q2

REPORT INFORMATION
  Report Type: 
  Country: None (occurrence: None)
  Receive Date: 20120413
  Receipt Date: 20111221
  Transmission Date: 20120825
  Serious: No
  Sender: FDA-Public Use
  Company Number: US-ASTRAZENECA-2011SE77811

PATIENT
  Age: 63 Year
  Sex: Female

DRUGS (11)
  1. ATENOLOL [Concomitant]
     Dosage: 1 AT MORNING, HALF AT EVENING
  2. FLEXERIL [Concomitant]
     Dosage: AS NEEDED
  3. PAXIL [Concomitant]
  4. PENTASA [Concomitant]
  5. MOBIC [Concomitant]
  6. LEVOXYL [Concomitant]
     Dosage: HALF TWICE A WEEK
  7. LEVOXYL [Concomitant]
  8. VITAMIN D [Concomitant]
  9. FISH OIL [Concomitant]
  10. TRAMADOL HCL [Concomitant]
     Dosage: AS NEEDED
  11. NEXIUM [Suspect]
     Route: 048

REACTIONS (2)
  - DRUG DOSE OMISSION [None]
  - DYSPEPSIA [None]
